FAERS Safety Report 7483244-4 (Version None)
Quarter: 2011Q2

REPORT INFORMATION
  Report Type: 
  Country: None (occurrence: None)
  Receive Date: 20110517
  Receipt Date: 20110511
  Transmission Date: 20111010
  Serious: Yes (Other)
  Sender: FDA-Public Use
  Company Number: US-BRISTOL-MYERS SQUIBB COMPANY-15736291

PATIENT

DRUGS (1)
  1. ABILIFY [Suspect]

REACTIONS (2)
  - TARDIVE DYSKINESIA [None]
  - PSYCHOTIC DISORDER [None]
